FAERS Safety Report 9837278 (Version 2)
Quarter: 2014Q1

REPORT INFORMATION
  Report Type: Spontaneous
  Country: US (occurrence: None)
  Receive Date: 20131127
  Receipt Date: 20140228
  Transmission Date: 20141002
  Serious: Yes (Other)
  Sender: FDA-Public Use
  Company Number: 224357

PATIENT
  Age: 71 Year
  Sex: Female

DRUGS (2)
  1. PICATO [Suspect]
     Indication: PRECANCEROUS CELLS PRESENT
     Dosage: USED 3 WEEKS AGO
     Route: 061
  2. VITAMINS (VITAMINS /90003601/) [Concomitant]

REACTIONS (2)
  - Application site erythema [None]
  - Application site exfoliation [None]
